FAERS Safety Report 4355957-4 (Version None)
Quarter: 2004Q2

REPORT INFORMATION
  Report Type: 
  Country: None (occurrence: None)
  Receive Date: 20040505
  Receipt Date: 20040426
  Transmission Date: 20050107
  Serious: Yes (Other)
  Sender: FDA-Public Use
  Company Number: 200412039BCC

PATIENT
  Age: 87 Year
  Sex: Female
  Weight: 55.7924 kg

DRUGS (4)
  1. ALEVE [Suspect]
     Dosage: 220 MG, QD, ORAL
     Route: 048
     Dates: start: 20040426
  2. ^NISEDACE^ [Concomitant]
  3. DIOVAN [Concomitant]
  4. ATENOLOL [Concomitant]

REACTIONS (1)
  - BLOOD PRESSURE INCREASED [None]
